FAERS Safety Report 13069689 (Version 1)
Quarter: 2016Q4

REPORT INFORMATION
  Report Type: Report from Study
  Country: US (occurrence: US)
  Receive Date: 20161228
  Receipt Date: 20161228
  Transmission Date: 20170207
  Serious: No
  Sender: FDA-Public Use
  Company Number: PHEH2016US033717

PATIENT
  Sex: Female

DRUGS (3)
  1. AFINITOR [Suspect]
     Active Substance: EVEROLIMUS
     Indication: BREAST CANCER
     Route: 065
  2. EXTAVIA [Concomitant]
     Active Substance: INTERFERON BETA-1B
     Indication: BONE DISORDER
     Dosage: QMO (ONCE A MONTH)
     Route: 065
  3. EXEMESTANE. [Concomitant]
     Active Substance: EXEMESTANE
     Indication: PRODUCT USED FOR UNKNOWN INDICATION
     Route: 065

REACTIONS (11)
  - Oral pain [Unknown]
  - Dysgeusia [Unknown]
  - Peripheral swelling [Unknown]
  - Joint swelling [Unknown]
  - Fall [Unknown]
  - Fatigue [Unknown]
  - Groin pain [Unknown]
  - Gait disturbance [Unknown]
  - Dyspnoea [Unknown]
  - Glossodynia [Unknown]
  - Headache [Unknown]
